FAERS Safety Report 5585006-1 (Version None)
Quarter: 2008Q1

REPORT INFORMATION
  Report Type: 
  Country: None (occurrence: None)
  Receive Date: 20080109
  Receipt Date: 20080104
  Transmission Date: 20080703
  Serious: Yes (Other)
  Sender: FDA-Public Use
  Company Number: HQWYE392022JUL05

PATIENT
  Sex: Female
  Weight: 63.11 kg

DRUGS (3)
  1. PREMPRO [Suspect]
  2. PROMETRIUM [Suspect]
  3. PREMARIN [Suspect]

REACTIONS (1)
  - BREAST CANCER METASTATIC [None]
